FAERS Safety Report 8142129-0 (Version None)
Quarter: 2012Q1

REPORT INFORMATION
  Report Type: 
  Country: None (occurrence: None)
  Receive Date: 20120103
  Receipt Date: 20111016
  Transmission Date: 20120608
  Serious: No
  Sender: FDA-Public Use
  Company Number: AE-2011-002370

PATIENT
  Age: 58 Year
  Sex: Female
  Weight: 86.1834 kg

DRUGS (3)
  1. INCIVEK [Suspect]
     Dosage: 6 DOSAGE FORMS (2 DOSAGE FORMS,3 IN 1 D),ORAL
     Route: 048
     Dates: start: 20110926
  2. RIBAVIRIN [Concomitant]
  3. PEGINTERFERON (PEGINTERFERON ALFA-2A) [Concomitant]

REACTIONS (5)
  - ORAL HERPES [None]
  - FATIGUE [None]
  - VOMITING [None]
  - NAUSEA [None]
  - HEADACHE [None]
